FAERS Safety Report 22219213 (Version 1)
Quarter: 2023Q2

REPORT INFORMATION
  Report Type: Spontaneous
  Country: US (occurrence: None)
  Receive Date: 20230416
  Receipt Date: 20230416
  Transmission Date: 20230722
  Serious: Yes (Disabling)
  Sender: FDA-Public Use
  Company Number: None

PATIENT
  Age: 40 Year
  Sex: Female
  Weight: 56 kg

DRUGS (2)
  1. FETROJA [Suspect]
     Active Substance: CEFIDEROCOL SULFATE TOSYLATE
     Indication: Pneumonia pseudomonal
     Dosage: OTHER QUANTITY : 2 GRAM IV INFUSION;?FREQUENCY : EVERY 8 HOURS;?
     Route: 042
  2. CEFEPIME [Suspect]
     Active Substance: CEFEPIME HYDROCHLORIDE

REACTIONS (16)
  - Staphylococcal sepsis [None]
  - Acute respiratory distress syndrome [None]
  - Haemophagocytic lymphohistiocytosis [None]
  - Blood urine [None]
  - Rash [None]
  - Cough [None]
  - Retching [None]
  - Vomiting [None]
  - Bladder spasm [None]
  - Pathogen resistance [None]
  - Therapy cessation [None]
  - Muscle atrophy [None]
  - Blood creatinine increased [None]
  - Device related sepsis [None]
  - Tubulointerstitial nephritis [None]
  - Refusal of treatment by patient [None]

NARRATIVE: CASE EVENT DATE: 20230228
